FAERS Safety Report 8505853-3 (Version None)
Quarter: 2012Q3

REPORT INFORMATION
  Report Type: 
  Country: None (occurrence: None)
  Receive Date: 20120712
  Receipt Date: 20120706
  Transmission Date: 20120928
  Serious: Yes (Hospitalization)
  Sender: FDA-Public Use
  Company Number: AU-B.I. PHARMACEUTICALS,INC./RIDGEFIELD-2012-AU-01144AU

PATIENT
  Sex: Female
  Weight: 83 kg

DRUGS (18)
  1. ACETAMINOPHEN [Concomitant]
     Dosage: 3990 MG
     Route: 048
  2. FUROSEMIDE [Suspect]
     Indication: CARDIAC FAILURE CONGESTIVE
  3. LASIX [Concomitant]
     Dosage: 40 MG
     Route: 048
  4. XALATAN [Concomitant]
     Dosage: 50 MCG
     Route: 047
  5. ATORVASTATIN [Concomitant]
     Dosage: 10 MG
     Route: 048
  6. DIGOXIN [Concomitant]
     Dosage: 62.5 MCG
     Route: 048
     Dates: start: 20120101
  7. METFORMIN HCL [Concomitant]
     Dosage: 1000 MG
     Route: 048
  8. PROCHLORPERAZINE [Concomitant]
     Dosage: 15 MG
     Route: 048
  9. PRADAXA [Suspect]
     Indication: ATRIAL FIBRILLATION
     Dosage: 220 MG
     Dates: start: 20110819, end: 20120127
  10. HYDROZOLE [Concomitant]
     Dosage: 1% STRENGTH
     Route: 061
  11. PANTOPRAZOLE [Concomitant]
     Dosage: 40 MG
     Route: 048
  12. ATENOLOL [Concomitant]
     Dosage: 25 MG
     Route: 048
  13. MS CONTIN [Concomitant]
     Dosage: 20 MG
     Route: 048
  14. VENTOLIN [Concomitant]
     Dosage: 1-2 PUFFS QID PRN
     Route: 055
  15. ASPIRIN [Concomitant]
     Dosage: 100 MG
     Route: 048
  16. OXAZEPAM [Concomitant]
     Dosage: 0.5-1 TABLET NOCTE MDU
     Route: 048
  17. OXYBUTYNIN [Concomitant]
     Dosage: 2.5 MG
     Route: 048
  18. RAMIPRIL [Concomitant]
     Dosage: 5 MG
     Route: 048

REACTIONS (3)
  - FLUID OVERLOAD [None]
  - RENAL IMPAIRMENT [None]
  - DYSPNOEA [None]
